FAERS Safety Report 5171230-9 (Version None)
Quarter: 2006Q4

REPORT INFORMATION
  Report Type: 
  Country: None (occurrence: None)
  Receive Date: 20061213
  Receipt Date: 20060630
  Transmission Date: 20070319
  Serious: Yes (Hospitalization)
  Sender: FDA-Public Use
  Company Number: US-AMGEN-US184860

PATIENT
  Sex: Female

DRUGS (5)
  1. ENBREL [Suspect]
     Indication: PSORIATIC ARTHROPATHY
     Route: 058
     Dates: start: 20030101, end: 20060608
  2. TOPROL-XL [Concomitant]
     Dates: end: 20060601
  3. ZOLOFT [Concomitant]
     Dates: end: 20060601
  4. LIPITOR [Concomitant]
     Dates: end: 20060601
  5. ASPIRIN [Concomitant]
     Dates: end: 20060601

REACTIONS (17)
  - ARTHRALGIA [None]
  - CHEST PAIN [None]
  - CHILLS [None]
  - DECREASED APPETITE [None]
  - DIARRHOEA [None]
  - FATIGUE [None]
  - IMMUNOSUPPRESSION [None]
  - INFECTION [None]
  - MENTAL DISORDER [None]
  - MYALGIA [None]
  - PAIN [None]
  - PSORIASIS [None]
  - PSORIATIC ARTHROPATHY [None]
  - PYREXIA [None]
  - RASH [None]
  - VISION BLURRED [None]
  - VOMITING [None]
